FAERS Safety Report 9849893 (Version 3)
Quarter: 2015Q2

REPORT INFORMATION
  Report Type: Spontaneous
  Country: US (occurrence: US)
  Receive Date: 20140128
  Receipt Date: 20150513
  Transmission Date: 20150821
  Serious: Yes (Hospitalization, Other)
  Sender: FDA-Public Use
  Company Number: US-PFIZER INC-2014022465

PATIENT
  Age: 70 Year
  Sex: Female

DRUGS (8)
  1. CALCIUM + VIT D [Concomitant]
     Active Substance: CALCIUM\VITAMIN D
     Dosage: UNK
  2. LOW DOSE ASPIRIN [Concomitant]
     Active Substance: ASPIRIN
     Dosage: UNK
  3. ONDANSETRON [Concomitant]
     Active Substance: ONDANSETRON
     Dosage: 8 MG, AS NEEDED
     Dates: start: 201209, end: 201302
  4. BYSTOLIC [Concomitant]
     Active Substance: NEBIVOLOL HYDROCHLORIDE
     Dosage: 2.5 MG, UNK
     Dates: start: 201209
  5. XALKORI [Suspect]
     Active Substance: CRIZOTINIB
     Indication: LUNG NEOPLASM MALIGNANT
     Dosage: 250 MG, 2X/DAY
     Dates: start: 20121111
  6. XALKORI [Suspect]
     Active Substance: CRIZOTINIB
     Dosage: 250 MG, 1X/DAY
     Dates: start: 201302, end: 201306
  7. XALKORI [Suspect]
     Active Substance: CRIZOTINIB
     Dosage: 250 MG, 1X/DAY
     Dates: start: 20130613, end: 201402
  8. XALKORI [Suspect]
     Active Substance: CRIZOTINIB
     Dosage: 250 MG, 1X/DAY
     Dates: start: 20140312

REACTIONS (16)
  - Asthenia [Unknown]
  - Vertigo [Unknown]
  - Pleural effusion [Unknown]
  - Nausea [Unknown]
  - Disease progression [Unknown]
  - Cystitis [Unknown]
  - Feeling abnormal [Unknown]
  - Swelling [Unknown]
  - Peripheral swelling [Unknown]
  - Lung neoplasm malignant [Unknown]
  - Pericardial effusion [Unknown]
  - Neurogenic bladder [Not Recovered/Not Resolved]
  - Photopsia [Unknown]
  - Diarrhoea [Unknown]
  - Gastrooesophageal reflux disease [Unknown]
  - Dyspnoea [Unknown]
